FAERS Safety Report 5488876-0 (Version None)
Quarter: 2007Q4

REPORT INFORMATION
  Report Type: 
  Country: None (occurrence: None)
  Receive Date: 20071015
  Receipt Date: 20070622
  Transmission Date: 20080405
  Serious: No
  Sender: FDA-Public Use
  Company Number: 2007SP002327

PATIENT
  Age: 62 Year
  Sex: Female
  Weight: 145.151 kg

DRUGS (22)
  1. LUNESTA [Suspect]
     Indication: EPSTEIN-BARR VIRUS INFECTION
     Dosage: 1 MGL ORAL 2 MG; ORAL 3 MG;1X;ORAL 2 MG; ORAL 1 MG; ORAL
     Route: 048
     Dates: start: 20070614, end: 20070615
  2. LUNESTA [Suspect]
     Indication: EPSTEIN-BARR VIRUS INFECTION
     Dosage: 1 MGL ORAL 2 MG; ORAL 3 MG;1X;ORAL 2 MG; ORAL 1 MG; ORAL
     Route: 048
     Dates: start: 20070616, end: 20070617
  3. LUNESTA [Suspect]
     Indication: EPSTEIN-BARR VIRUS INFECTION
     Dosage: 1 MGL ORAL 2 MG; ORAL 3 MG;1X;ORAL 2 MG; ORAL 1 MG; ORAL
     Route: 048
     Dates: start: 20070618, end: 20070618
  4. LUNESTA [Suspect]
     Indication: EPSTEIN-BARR VIRUS INFECTION
     Dosage: 1 MGL ORAL 2 MG; ORAL 3 MG;1X;ORAL 2 MG; ORAL 1 MG; ORAL
     Route: 048
     Dates: start: 20070619, end: 20070620
  5. LUNESTA [Suspect]
     Indication: EPSTEIN-BARR VIRUS INFECTION
     Dosage: 1 MGL ORAL 2 MG; ORAL 3 MG;1X;ORAL 2 MG; ORAL 1 MG; ORAL
     Route: 048
     Dates: start: 20070621
  6. VALIUM [Concomitant]
  7. CYMBALTA [Concomitant]
  8. ANTIHISTAMINES [Concomitant]
  9. DHEA [Concomitant]
  10. INDOMETHACIN [Concomitant]
  11. NYSTATIN [Concomitant]
  12. ALDOSTERONE [Concomitant]
  13. DIAZEPAM [Concomitant]
  14. PROGESTERONE [Concomitant]
  15. TRAMADOL HCL [Concomitant]
  16. HYDROCORTISONE [Concomitant]
  17. BACTERIA NOS [Concomitant]
  18. FISH OIL [Concomitant]
  19. ESTROGENS [Concomitant]
  20. THYROID TAB [Concomitant]
  21. IMMUNE GLOBULIN INTRAVENOUS (HUMAN) [Concomitant]
  22. VITAMIN B-12 [Concomitant]

REACTIONS (1)
  - INSOMNIA [None]
